FAERS Safety Report 6074557-1 (Version None)
Quarter: 2009Q1

REPORT INFORMATION
  Report Type: 
  Country: None (occurrence: None)
  Receive Date: 20090206
  Receipt Date: 20090121
  Transmission Date: 20090719
  Serious: Yes (Hospitalization)
  Sender: FDA-Public Use
  Company Number: 8040859

PATIENT
  Age: 37 Year
  Sex: Female
  Weight: 61.36 kg

DRUGS (15)
  1. CIMZIA [Suspect]
     Indication: CROHN'S DISEASE
     Dosage: 400 MG SC
     Route: 058
     Dates: start: 20090101
  2. PERCOCET [Concomitant]
  3. FENTANYL [Concomitant]
  4. OCELLA [Concomitant]
  5. TIZANIDINE HCL [Concomitant]
  6. ASACOL [Concomitant]
  7. XANAX [Concomitant]
  8. ZYRTEC [Concomitant]
  9. MAXALT [Concomitant]
  10. ZOFRAN [Concomitant]
  11. RANITIDINE [Concomitant]
  12. BENADRYL [Concomitant]
  13. ZANTAC [Concomitant]
  14. SODIUM CHLORIDE [Concomitant]
  15. LEVAQUIN [Concomitant]

REACTIONS (8)
  - ANXIETY [None]
  - CONDITION AGGRAVATED [None]
  - CONVULSION [None]
  - DEHYDRATION [None]
  - INFECTION [None]
  - RASH MACULAR [None]
  - RECTAL HAEMORRHAGE [None]
  - URTICARIA [None]
